FAERS Safety Report 9237236 (Version 3)
Quarter: 2013Q3

REPORT INFORMATION
  Report Type: Spontaneous
  Country: US (occurrence: US)
  Receive Date: 20130417
  Receipt Date: 20130705
  Transmission Date: 20140515
  Serious: No
  Sender: FDA-Public Use
  Company Number: US-PFIZER INC-2013118346

PATIENT
  Age: 58 Year
  Sex: Female

DRUGS (3)
  1. CHANTIX [Suspect]
     Indication: SMOKING CESSATION THERAPY
     Dosage: UNK
     Route: 048
     Dates: start: 20090409, end: 200904
  2. CHANTIX [Suspect]
     Dosage: UNK
     Route: 048
     Dates: start: 20090427, end: 2009
  3. CHANTIX [Suspect]
     Dosage: UNK
     Route: 048
     Dates: start: 20090608

REACTIONS (4)
  - Nausea [Recovered/Resolved]
  - Asthma [Unknown]
  - Skin odour abnormal [Unknown]
  - Abdominal pain upper [Unknown]
